FAERS Safety Report 10394440 (Version 1)
Quarter: 2014Q3

REPORT INFORMATION
  Report Type: Spontaneous
  Country: ZA (occurrence: ZA)
  Receive Date: 20140819
  Receipt Date: 20140819
  Transmission Date: 20150326
  Serious: Yes (Death)
  Sender: FDA-Public Use
  Company Number: ZA-MERCK-1408ZAF009407

PATIENT
  Sex: Male

DRUGS (7)
  1. ZINACEF [Suspect]
     Active Substance: CEFUROXIME SODIUM
     Indication: ANTIBIOTIC THERAPY
     Dosage: UNK
     Dates: start: 2013
  2. KLACID (CLARITHROMYCIN LACTOBIONATE) [Suspect]
     Active Substance: CLARITHROMYCIN
     Indication: ANTIBIOTIC THERAPY
     Dosage: UNK
     Dates: start: 2013
  3. FLAGYL [Suspect]
     Active Substance: METRONIDAZOLE\METRONIDAZOLE HYDROCHLORIDE
     Indication: ANTIBIOTIC THERAPY
     Dosage: UNK
     Dates: start: 2013
  4. CANCIDAS [Suspect]
     Active Substance: CASPOFUNGIN ACETATE
     Indication: ANTIBIOTIC PROPHYLAXIS
  5. CANCIDAS [Suspect]
     Active Substance: CASPOFUNGIN ACETATE
     Indication: ANTIFUNGAL TREATMENT
     Dosage: UNK
     Route: 042
     Dates: start: 20131213
  6. INVANZ [Suspect]
     Active Substance: ERTAPENEM SODIUM
     Indication: ANTIBIOTIC THERAPY
     Dosage: UNK
     Dates: start: 2013
  7. MERONEM [Suspect]
     Active Substance: MEROPENEM
     Indication: ANTIBIOTIC THERAPY
     Dosage: UNK
     Dates: start: 2013

REACTIONS (24)
  - Aspartate aminotransferase increased [Recovered/Resolved]
  - Blood bicarbonate increased [Unknown]
  - Blood magnesium decreased [Recovered/Resolved]
  - Blood sodium decreased [Unknown]
  - Gamma-glutamyltransferase increased [Unknown]
  - Cardiac failure acute [None]
  - Hepatic function abnormal [None]
  - Myocardial infarction [None]
  - Pneumonia [None]
  - Death [Fatal]
  - Blood bilirubin increased [Unknown]
  - Blood creatinine decreased [Unknown]
  - N-terminal prohormone brain natriuretic peptide increased [Unknown]
  - Platelet count increased [Unknown]
  - Cor pulmonale [None]
  - Pulmonary embolism [None]
  - Renal failure [None]
  - Mean cell haemoglobin increased [Recovered/Resolved]
  - Protein total decreased [Unknown]
  - Blood phosphorus decreased [Recovered/Resolved]
  - Drug effect incomplete [Unknown]
  - Bilirubin conjugated increased [Unknown]
  - Blood alkaline phosphatase increased [Unknown]
  - Blood chloride decreased [Unknown]

NARRATIVE: CASE EVENT DATE: 201312
